FAERS Safety Report 25082818 (Version 1)
Quarter: 2025Q1

REPORT INFORMATION
  Report Type: Other
  Country: ES (occurrence: ES)
  Receive Date: 20250317
  Receipt Date: 20250317
  Transmission Date: 20250408
  Serious: Yes (Other)
  Sender: Kanchan Healthcare
  Company Number: ES-Kanchan Healthcare INC-2173032

PATIENT
  Sex: Female

DRUGS (7)
  1. CYCLOPHOSPHAMIDE [Suspect]
     Active Substance: CYCLOPHOSPHAMIDE
     Indication: Congenital retinoblastoma
  2. VINCRISTINE SULFATE [Suspect]
     Active Substance: VINCRISTINE SULFATE
  3. TOPOTECAN [Suspect]
     Active Substance: TOPOTECAN HYDROCHLORIDE
  4. SARGRAMOSTIM [Suspect]
     Active Substance: SARGRAMOSTIM
  5. NAXITAMAB [Suspect]
     Active Substance: NAXITAMAB
  6. THIOTEPA [Suspect]
     Active Substance: THIOTEPA
  7. ETOPOSIDE [Suspect]
     Active Substance: ETOPOSIDE

REACTIONS (1)
  - Deafness neurosensory [Unknown]
